FAERS Safety Report 17239569 (Version 1)
Quarter: 2020Q1

REPORT INFORMATION
  Report Type: Spontaneous
  Country: US (occurrence: US)
  Receive Date: 20200106
  Receipt Date: 20200106
  Transmission Date: 20200409
  Serious: No
  Sender: FDA-Public Use
  Company Number: US-ROCHE-2228277

PATIENT
  Sex: Male

DRUGS (1)
  1. GAZYVA [Suspect]
     Active Substance: OBINUTUZUMAB
     Indication: B-CELL LYMPHOMA
     Dosage: RATE OF 50MG/HR WITH INCREMENTAL INCREASE;ONGOING: YES
     Route: 041

REACTIONS (1)
  - Dyspnoea [Recovered/Resolved]
